FAERS Safety Report 4314730-3 (Version None)
Quarter: 2004Q1

REPORT INFORMATION
  Report Type: 
  Country: None (occurrence: None)
  Receive Date: 20040310
  Receipt Date: 20040304
  Transmission Date: 20041129
  Serious: Yes (Other)
  Sender: FDA-Public Use
  Company Number: US-BRISTOL-MYERS SQUIBB COMPANY-12525382

PATIENT
  Sex: Female

DRUGS (2)
  1. STADOL [Suspect]
     Dosage: DURATION: MORE THAN 3 YEARS  THERAPY TO: 1998 OR 1999
     Route: 045
  2. STADOL [Suspect]
     Dosage: ROUTE: IM AND IV  DURATION: IM: MORE THAN 3 YEARS  DURATION TO: 1998 TO 1999
     Route: 030

REACTIONS (5)
  - DEPENDENCE [None]
  - DRUG WITHDRAWAL SYNDROME [None]
  - ECTOPIC PREGNANCY [None]
  - PRURITUS [None]
  - SUICIDE ATTEMPT [None]
